FAERS Safety Report 22946625 (Version 6)
Quarter: 2023Q4

REPORT INFORMATION
  Report Type: Report from Study
  Country: US (occurrence: US)
  Receive Date: 20230915
  Receipt Date: 20231129
  Transmission Date: 20240110
  Serious: No
  Sender: FDA-Public Use
  Company Number: US-002147023-NVSC2023US198252

PATIENT
  Sex: Female

DRUGS (1)
  1. KISQALI [Suspect]
     Active Substance: RIBOCICLIB
     Indication: Product used for unknown indication
     Dosage: UNK
     Route: 048

REACTIONS (16)
  - Asthenia [Unknown]
  - Blood potassium decreased [Unknown]
  - Vomiting [Unknown]
  - Temporomandibular joint syndrome [Unknown]
  - Pelvic pain [Not Recovered/Not Resolved]
  - Skin atrophy [Unknown]
  - Arthritis [Unknown]
  - Increased tendency to bruise [Unknown]
  - Diarrhoea [Recovered/Resolved]
  - Dizziness [Unknown]
  - Back pain [Not Recovered/Not Resolved]
  - Rash macular [Unknown]
  - Pruritus [Unknown]
  - Dry skin [Unknown]
  - Hypersensitivity [Unknown]
  - Somnolence [Unknown]
